FAERS Safety Report 11090830 (Version 1)
Quarter: 2015Q2

REPORT INFORMATION
  Report Type: Spontaneous
  Country: US (occurrence: None)
  Receive Date: 20150504
  Receipt Date: 20150504
  Transmission Date: 20150821
  Serious: Yes (Disabling)
  Sender: FDA-Public Use
  Company Number: None

PATIENT
  Age: 54 Year
  Sex: Female
  Weight: 78.02 kg

DRUGS (1)
  1. CYMBALTA [Suspect]
     Active Substance: DULOXETINE HYDROCHLORIDE
     Indication: FIBROMYALGIA
     Dosage: DULOXETINE HCL
     Route: 048
     Dates: start: 20150225, end: 20150308

REACTIONS (4)
  - Dizziness [None]
  - Drug hypersensitivity [None]
  - Wrong technique in drug usage process [None]
  - Drug prescribing error [None]

NARRATIVE: CASE EVENT DATE: 20150226
